FAERS Safety Report 22811936 (Version 2)
Quarter: 2023Q4

REPORT INFORMATION
  Report Type: Spontaneous
  Country: US (occurrence: US)
  Receive Date: 20230811
  Receipt Date: 20231109
  Transmission Date: 20240109
  Serious: Yes (Other)
  Sender: FDA-Public Use
  Company Number: US-BRISTOL-MYERS SQUIBB COMPANY-2023-111878

PATIENT
  Age: 87 Year
  Sex: Female

DRUGS (1)
  1. ORENCIA [Suspect]
     Active Substance: ABATACEPT
     Indication: Product used for unknown indication
     Dosage: FREQ: TAKE ONE INJECTION SUBCUTANEOUSLY EVERY 7 DAYS
     Route: 058

REACTIONS (2)
  - Fall [Unknown]
  - Hip fracture [Unknown]
